FAERS Safety Report 24532847 (Version 1)
Quarter: 2024Q4

REPORT INFORMATION
  Report Type: Report from Study
  Country: US (occurrence: US)
  Receive Date: 20241022
  Receipt Date: 20241022
  Transmission Date: 20250114
  Serious: Yes (Other)
  Sender: ALEXION PHARMACEUTICALS
  Company Number: US-AstraZeneca-CH-00720366A

PATIENT

DRUGS (1)
  1. CALQUENCE [Suspect]
     Active Substance: ACALABRUTINIB
     Indication: Waldenstrom^s macroglobulinaemia
     Dosage: 200 MILLIGRAM, BID

REACTIONS (4)
  - Parkinson^s disease [Unknown]
  - Bipolar disorder [Unknown]
  - Tremor [Unknown]
  - Product dose omission issue [Unknown]
